FAERS Safety Report 18019392 (Version 1)
Quarter: 2020Q3

REPORT INFORMATION
  Report Type: Spontaneous
  Country: US (occurrence: US)
  Receive Date: 20200714
  Receipt Date: 20200714
  Transmission Date: 20201103
  Serious: Yes (Other)
  Sender: FDA-Public Use
  Company Number: None

PATIENT
  Age: 64 Year
  Sex: Female
  Weight: 112.3 kg

DRUGS (19)
  1. ZINC. [Concomitant]
     Active Substance: ZINC
     Dates: start: 20200618
  2. REMDESIVIR EUA [Suspect]
     Active Substance: REMDESIVIR
     Indication: COVID-19
     Dates: start: 20200707, end: 20200708
  3. ATORVASTATIN [Concomitant]
     Active Substance: ATORVASTATIN
     Dates: start: 20200618
  4. ASPIRIN. [Concomitant]
     Active Substance: ASPIRIN
     Dates: start: 20200618
  5. POLYETHYLENE GLYCOL [Concomitant]
     Active Substance: POLYETHYLENE GLYCOLS
     Dates: start: 20200622
  6. PANTOPRAZOLE [Concomitant]
     Active Substance: PANTOPRAZOLE
     Dates: start: 20200621
  7. LEVOTHYROXINE. [Concomitant]
     Active Substance: LEVOTHYROXINE
     Dates: start: 20200618
  8. AMLODIPINE [Concomitant]
     Active Substance: AMLODIPINE BESYLATE
     Dates: start: 20200618
  9. PENTOXIFYLLINE. [Concomitant]
     Active Substance: PENTOXIFYLLINE
     Dates: start: 20200620
  10. MULTIVITAMINS [Concomitant]
     Active Substance: VITAMINS
     Dates: start: 20200618
  11. ASCORBIC ACID. [Concomitant]
     Active Substance: ASCORBIC ACID
     Dates: start: 20200618
  12. TOCILIZUMAB. [Concomitant]
     Active Substance: TOCILIZUMAB
     Dates: start: 20200707, end: 20200707
  13. SENNA [Concomitant]
     Active Substance: SENNA LEAF\SENNOSIDES\SENNOSIDES A AND B
     Dates: start: 20200706
  14. ACETAMINOPHEN. [Concomitant]
     Active Substance: ACETAMINOPHEN
     Dates: start: 20200617
  15. ROCURONIUM [Concomitant]
     Active Substance: ROCURONIUM BROMIDE
     Dates: start: 20200707
  16. QUETIAPINE. [Concomitant]
     Active Substance: QUETIAPINE
     Dates: start: 20200622
  17. INSULIN [Concomitant]
     Active Substance: INSULIN NOS
     Dates: start: 20200620
  18. HEPAINE [Concomitant]
     Dates: start: 20200701
  19. AZTREONAM. [Concomitant]
     Active Substance: AZTREONAM
     Dates: start: 20200701

REACTIONS (2)
  - Therapy cessation [None]
  - Acute kidney injury [None]

NARRATIVE: CASE EVENT DATE: 20200707
